FAERS Safety Report 7023663-3 (Version None)
Quarter: 2010Q3

REPORT INFORMATION
  Report Type: 
  Country: None (occurrence: None)
  Receive Date: 20100929
  Receipt Date: 20100929
  Transmission Date: 20110219
  Serious: Yes (Hospitalization)
  Sender: FDA-Public Use
  Company Number: None

PATIENT
  Sex: Female
  Weight: 109.54 kg

DRUGS (2)
  1. CARBOPLATIN [Suspect]
     Dosage: 190 MG
  2. TAXOL [Suspect]
     Dosage: 270 MG

REACTIONS (15)
  - ABDOMINAL PAIN UPPER [None]
  - ANAEMIA [None]
  - ASTHENIA [None]
  - BLOOD ALBUMIN DECREASED [None]
  - BLOOD URINE PRESENT [None]
  - BODY TEMPERATURE INCREASED [None]
  - CONFUSIONAL STATE [None]
  - HYPOTENSION [None]
  - LETHARGY [None]
  - OXYGEN SATURATION DECREASED [None]
  - RENAL DISORDER [None]
  - RENAL FAILURE ACUTE [None]
  - RENAL TUBULAR NECROSIS [None]
  - SEPSIS [None]
  - WHITE BLOOD CELL COUNT INCREASED [None]
